FAERS Safety Report 7617304-1 (Version None)
Quarter: 2011Q3

REPORT INFORMATION
  Report Type: 
  Country: None (occurrence: None)
  Receive Date: 20110718
  Receipt Date: 20110707
  Transmission Date: 20111222
  Serious: Yes (Other)
  Sender: FDA-Public Use
  Company Number: PHHY2011BR60875

PATIENT
  Sex: Female

DRUGS (2)
  1. RITALIN [Suspect]
     Indication: ATTENTION DEFICIT/HYPERACTIVITY DISORDER
     Dosage: 1 DF,DAILY
     Route: 048
     Dates: end: 20110520
  2. METHYLPHENIDATE HYDROCHLORIDE [Suspect]
     Dosage: 1 DF, DAILY
     Route: 048
     Dates: start: 20110501, end: 20110525

REACTIONS (6)
  - HYPOTHYROIDISM [None]
  - ALOPECIA [None]
  - SKIN EXFOLIATION [None]
  - HYPOAESTHESIA [None]
  - CONVULSION [None]
  - VIITH NERVE PARALYSIS [None]
